FAERS Safety Report 25078490 (Version 1)
Quarter: 2025Q1

REPORT INFORMATION
  Report Type: Spontaneous
  Country: US (occurrence: US)
  Receive Date: 20250314
  Receipt Date: 20250314
  Transmission Date: 20250409
  Serious: No
  Sender: PFIZER
  Company Number: US-PFIZER INC-202500055874

PATIENT
  Age: 74 Year
  Sex: Male

DRUGS (2)
  1. RIFABUTIN [Interacting]
     Active Substance: RIFABUTIN
  2. ATOVAQUONE [Interacting]
     Active Substance: ATOVAQUONE

REACTIONS (2)
  - Drug interaction [Unknown]
  - Drug level decreased [Unknown]
